FAERS Safety Report 6450567-7 (Version None)
Quarter: 2009Q4

REPORT INFORMATION
  Report Type: 
  Country: None (occurrence: None)
  Receive Date: 20091123
  Receipt Date: 20091118
  Transmission Date: 20100525
  Serious: No
  Sender: FDA-Public Use
  Company Number: US-B.I. PHARMACEUTICALS,INC./RIDGEFIELD-2009-BP-13429BP

PATIENT
  Sex: Female

DRUGS (7)
  1. SPIRIVA [Suspect]
     Indication: CHRONIC OBSTRUCTIVE PULMONARY DISEASE
     Dosage: 18 MCG
     Route: 055
     Dates: start: 20090201
  2. ASPIRIN [Concomitant]
     Indication: PROPHYLAXIS
  3. CALCIUM + D [Concomitant]
     Indication: PROPHYLAXIS
  4. DOCUSATE SODIUM [Concomitant]
     Indication: FAECES HARD
  5. HYDROCHLOROTHIAZIDE [Concomitant]
     Indication: FLUID RETENTION
  6. LEVOXYL [Concomitant]
     Indication: HYPOTHYROIDISM
  7. NORVASC [Concomitant]
     Indication: HYPERTENSION

REACTIONS (3)
  - ANXIETY [None]
  - H1N1 INFLUENZA [None]
  - PRODUCTIVE COUGH [None]
